FAERS Safety Report 15220794 (Version 1)
Quarter: 2018Q3

REPORT INFORMATION
  Report Type: Spontaneous
  Country: US (occurrence: US)
  Receive Date: 20180731
  Receipt Date: 20180731
  Transmission Date: 20181010
  Serious: No
  Sender: FDA-Public Use
  Company Number: US-ENDO PHARMACEUTICALS INC-2017-005404

PATIENT

DRUGS (1)
  1. PREDNISONE TABLETS 1MG [Suspect]
     Active Substance: PREDNISONE
     Indication: SECONDARY ADRENOCORTICAL INSUFFICIENCY
     Dosage: 9 MG, DAILY
     Route: 065

REACTIONS (2)
  - Feeling abnormal [Recovered/Resolved]
  - Drug ineffective [Recovered/Resolved]
